FAERS Safety Report 6519245-X (Version None)
Quarter: 2009Q4

REPORT INFORMATION
  Report Type: 
  Country: None (occurrence: None)
  Receive Date: 20091228
  Receipt Date: 20091215
  Transmission Date: 20100525
  Serious: Yes (Hospitalization, Other)
  Sender: FDA-Public Use
  Company Number: PHHY2009DE54908

PATIENT
  Age: 48 Year
  Sex: Male

DRUGS (2)
  1. SANDOSTATIN [Suspect]
     Indication: ACROMEGALY
     Dosage: 50 UG, TIW
     Route: 058
     Dates: start: 19940101
  2. SANDOSTATIN [Suspect]
     Dosage: 5X100 UG
     Route: 058

REACTIONS (3)
  - ARRHYTHMIA [None]
  - EXTRASYSTOLES [None]
  - SURGERY [None]
